FAERS Safety Report 25215923 (Version 3)
Quarter: 2025Q3

REPORT INFORMATION
  Report Type: Report from Study
  Country: JP (occurrence: JP)
  Receive Date: 20250418
  Receipt Date: 20250816
  Transmission Date: 20251020
  Serious: Yes (Other)
  Sender: ALEXION PHARMACEUTICALS
  Company Number: JP-ASTRAZENECA-230097991_011820_P_1

PATIENT
  Age: 16 Year
  Sex: Female
  Weight: 56 kg

DRUGS (9)
  1. KOSELUGO [Suspect]
     Active Substance: SELUMETINIB
     Indication: Neurofibromatosis
     Dosage: 40 MILLIGRAM, BID
     Dates: start: 20231004, end: 20231123
  2. KOSELUGO [Suspect]
     Active Substance: SELUMETINIB
     Indication: Neurofibromatosis
     Dates: start: 20231124, end: 20231221
  3. KOSELUGO [Suspect]
     Active Substance: SELUMETINIB
     Dosage: 30 MILLIGRAM, BID
     Dates: start: 20231222, end: 20240610
  4. KOSELUGO [Suspect]
     Active Substance: SELUMETINIB
     Dates: start: 20240611, end: 20240819
  5. KOSELUGO [Suspect]
     Active Substance: SELUMETINIB
     Dosage: 20 MILLIGRAM, BID
     Dates: start: 20240820
  6. ABILIFY [Concomitant]
     Active Substance: ARIPIPRAZOLE
     Route: 065
  7. RISPERIDONE [Concomitant]
     Active Substance: RISPERIDONE
     Route: 065
  8. PRANLUKAST [Concomitant]
     Active Substance: PRANLUKAST
     Route: 065
  9. INTUNIV [Concomitant]
     Active Substance: GUANFACINE HYDROCHLORIDE
     Route: 065

REACTIONS (3)
  - Serous retinopathy [Recovering/Resolving]
  - Blood creatine phosphokinase increased [Recovered/Resolved]
  - Alanine aminotransferase increased [Unknown]

NARRATIVE: CASE EVENT DATE: 20231031
